FAERS Safety Report 4269446-9 (Version None)
Quarter: 2004Q1

REPORT INFORMATION
  Report Type: 
  Country: None (occurrence: None)
  Receive Date: 20040113
  Receipt Date: 19981117
  Transmission Date: 20041129
  Serious: Yes (Hospitalization, Disabling, Congenital Anomaly)
  Sender: FDA-Public Use
  Company Number: US-ROCHE-109381

PATIENT

DRUGS (3)
  1. ACCUTANE [Suspect]
     Dates: start: 19830118
  2. ACCUTANE [Suspect]
     Dates: start: 19831024
  3. MACRODANTIN [Concomitant]
     Dates: start: 19830120, end: 19830130

REACTIONS (32)
  - APHASIA [None]
  - AUTISM [None]
  - BREECH DELIVERY [None]
  - CARDIAC MURMUR [None]
  - CARDIOMEGALY [None]
  - CEREBRAL PALSY [None]
  - CHOKING [None]
  - CONGENITAL ANOMALY [None]
  - CORRECTIVE LENS USER [None]
  - DEAFNESS [None]
  - DEVELOPMENTAL DELAY [None]
  - DIFFICULTY IN WALKING [None]
  - DYSPHAGIA [None]
  - EAR MALFORMATION [None]
  - ENCEPHALOPATHY [None]
  - EYE DISORDER [None]
  - EYELID PTOSIS [None]
  - FACIAL PARESIS [None]
  - HAEMORRHAGE [None]
  - HYDROCEPHALUS [None]
  - HYPERBILIRUBINAEMIA [None]
  - HYPOTONIA [None]
  - HYPOTONIA NEONATAL [None]
  - MATERNAL DRUGS AFFECTING FOETUS [None]
  - MENTAL RETARDATION SEVERITY UNSPECIFIED [None]
  - MICROGNATHIA [None]
  - OTITIS MEDIA CHRONIC [None]
  - PHARYNGOLARYNGEAL PAIN [None]
  - SPEECH DISORDER DEVELOPMENTAL [None]
  - STRABISMUS [None]
  - VISUAL DISTURBANCE [None]
  - WEIGHT GAIN POOR [None]
